FAERS Safety Report 5810445-0 (Version None)
Quarter: 2008Q3

REPORT INFORMATION
  Report Type: 
  Country: None (occurrence: None)
  Receive Date: 20080715
  Receipt Date: 20080703
  Transmission Date: 20090109
  Serious: Yes (Death)
  Sender: FDA-Public Use
  Company Number: IE-PFIZER INC-2008046985

PATIENT
  Sex: Male

DRUGS (11)
  1. CHANTIX [Suspect]
     Route: 048
  2. ALLOPURINOL [Concomitant]
     Dosage: DAILY DOSE:300MG
  3. POTASSIUM CHLORIDE [Concomitant]
     Dosage: DAILY DOSE:40MG
  4. ISTIN [Concomitant]
     Dosage: DAILY DOSE:10MG
  5. ATENOLOL [Concomitant]
     Dosage: DAILY DOSE:20MG
  6. LIPITOR [Concomitant]
     Dosage: DAILY DOSE:20MG
  7. ACETYLSALICYLIC ACID SRT [Concomitant]
     Dosage: DAILY DOSE:75MG
  8. DOXAZOSIN MESYLATE [Concomitant]
     Dosage: DAILY DOSE:1MG
  9. TRAMADOL HCL [Concomitant]
     Dosage: DAILY DOSE:50MG
  10. AMOXIL [Concomitant]
     Dosage: DAILY DOSE:90MG
  11. NEURONTIN [Concomitant]
     Dosage: DAILY DOSE:100MG

REACTIONS (1)
  - DEATH [None]
